FAERS Safety Report 6024083-0 (Version None)
Quarter: 2008Q4

REPORT INFORMATION
  Report Type: 
  Country: None (occurrence: None)
  Receive Date: 20081224
  Receipt Date: 20081210
  Transmission Date: 20090506
  Serious: Yes (Other)
  Sender: FDA-Public Use
  Company Number: 2008BM000246

PATIENT
  Age: 3 Year
  Sex: Male
  Weight: 16.1 kg

DRUGS (1)
  1. NAGLAZYME [Suspect]
     Indication: MUCOPOLYSACCHARIDOSIS
     Dosage: 15 MG; QW; IV-DRIP
     Route: 041
     Dates: start: 20080505

REACTIONS (8)
  - ABDOMINAL PAIN [None]
  - CHILLS [None]
  - HYPERTHERMIA [None]
  - INFUSION RELATED REACTION [None]
  - NAUSEA [None]
  - PALLOR [None]
  - TREMOR [None]
  - VOMITING [None]
